FAERS Safety Report 10047639 (Version 1)
Quarter: 2014Q1

REPORT INFORMATION
  Report Type: Spontaneous
  Country: IL (occurrence: IL)
  Receive Date: 20140331
  Receipt Date: 20140331
  Transmission Date: 20141002
  Serious: Yes (Other)
  Sender: FDA-Public Use
  Company Number: IL-PFIZER INC-2014090776

PATIENT
  Age: 52 Year
  Sex: Female

DRUGS (1)
  1. CHAMPIX [Suspect]
     Dosage: UNK

REACTIONS (1)
  - Pneumonia [Recovered/Resolved]
